FAERS Safety Report 22535787 (Version 1)
Quarter: 2023Q2

REPORT INFORMATION
  Report Type: Spontaneous
  Country: US (occurrence: None)
  Receive Date: 20230607
  Receipt Date: 20230607
  Transmission Date: 20230722
  Serious: Yes (Hospitalization)
  Sender: FDA-Public Use
  Company Number: None

PATIENT
  Sex: Female

DRUGS (10)
  1. VIGABATRIN [Suspect]
     Active Substance: VIGABATRIN
     Indication: Infantile spasms
     Dosage: FREQUENCY : DAILY;?OTHER ROUTE : VIA G-TUBE;?
     Route: 050
  2. FAMOTIDINE [Concomitant]
     Active Substance: FAMOTIDINE
  3. MIRALAX [Concomitant]
     Active Substance: POLYETHYLENE GLYCOL 3350
  4. PHENOBARBITAL [Concomitant]
     Active Substance: PHENOBARBITAL
  5. ALBUTEROL [Concomitant]
     Active Substance: ALBUTEROL
  6. FLOVENT [Concomitant]
     Active Substance: FLUTICASONE PROPIONATE
  7. VITAMINS [Concomitant]
     Active Substance: VITAMINS
  8. EPIDIOLEX [Concomitant]
     Active Substance: CANNABIDIOL
  9. CLOBAZAM [Concomitant]
     Active Substance: CLOBAZAM
  10. SYNAGIS [Concomitant]
     Active Substance: PALIVIZUMAB

REACTIONS (1)
  - Seizure [None]
